FAERS Safety Report 5823491-8 (Version None)
Quarter: 2008Q3

REPORT INFORMATION
  Report Type: 
  Country: None (occurrence: None)
  Receive Date: 20080725
  Receipt Date: 20080716
  Transmission Date: 20090109
  Serious: Yes (Other)
  Sender: FDA-Public Use
  Company Number: US-PFIZER INC-2008060233

PATIENT
  Sex: Female
  Weight: 72.6 kg

DRUGS (11)
  1. CELEBREX [Suspect]
     Indication: FIBROMYALGIA
     Dates: start: 20010101, end: 20060101
  2. LYRICA [Suspect]
     Indication: FIBROMYALGIA
     Dates: start: 20080101, end: 20080101
  3. XALATAN [Suspect]
     Indication: INTRAOCULAR PRESSURE INCREASED
     Dates: start: 20080301, end: 20080713
  4. AMITRIPTYLINE HCL [Suspect]
     Dates: start: 20080101, end: 20080101
  5. AMBIEN [Suspect]
     Dates: start: 20070101, end: 20080101
  6. VALSARTAN [Concomitant]
  7. PRILOSEC [Concomitant]
  8. HYDROCODONE BITARTRATE + ACETAMINOPHEN [Concomitant]
     Indication: PAIN
  9. CARVEDILOL [Concomitant]
  10. EFFEXOR [Concomitant]
  11. POTASSIUM CHLORIDE [Concomitant]

REACTIONS (13)
  - BLOOD CHLORIDE DECREASED [None]
  - BLOOD CHOLESTEROL INCREASED [None]
  - BLOOD UREA INCREASED [None]
  - DISTURBANCE IN ATTENTION [None]
  - DYSKINESIA [None]
  - EYE IRRITATION [None]
  - GASTRIC DISORDER [None]
  - HEADACHE [None]
  - MOTION SICKNESS [None]
  - OCULAR HYPERAEMIA [None]
  - TREMOR [None]
  - ULCER [None]
  - VISUAL IMPAIRMENT [None]
